FAERS Safety Report 16988088 (Version 1)
Quarter: 2019Q4

REPORT INFORMATION
  Report Type: Spontaneous
  Country: US (occurrence: US)
  Receive Date: 20191104
  Receipt Date: 20191104
  Transmission Date: 20200122
  Serious: No
  Sender: FDA-Public Use
  Company Number: US-CIPLA LTD.-2019US05783

PATIENT

DRUGS (1)
  1. GABAPENTIN. [Suspect]
     Active Substance: GABAPENTIN
     Indication: BACK PAIN
     Dosage: 400 MILLIGRAM, BID (ONE PILL AT 9:00 IN THE MORNING AND THE SECOND PILL 9:30 AT NIGHT)
     Route: 065

REACTIONS (5)
  - Nausea [Unknown]
  - Off label use [Unknown]
  - Dehydration [Unknown]
  - Product use in unapproved indication [Unknown]
  - Vertigo [Unknown]

NARRATIVE: CASE EVENT DATE: 201908
